FAERS Safety Report 4401344-X (Version None)
Quarter: 2004Q3

REPORT INFORMATION
  Report Type: 
  Country: None (occurrence: None)
  Receive Date: 20040907
  Receipt Date: 20040319
  Transmission Date: 20050211
  Serious: No
  Sender: FDA-Public Use
  Company Number: US-BRISTOL-MYERS SQUIBB COMPANY-12537635

PATIENT

DRUGS (3)
  1. COUMADIN [Suspect]
     Indication: HEART VALVE REPLACEMENT
  2. PEG-INTRON [Suspect]
     Indication: HEPATITIS C
     Dosage: INJECTABLE POWDER
     Route: 058
  3. REBETOL [Suspect]
     Indication: HEPATITIS C
     Dosage: CAPSULES
     Route: 048

REACTIONS (1)
  - INTERNATIONAL NORMALISED RATIO ABNORMAL [None]
